FAERS Safety Report 5860774-X (Version None)
Quarter: 2008Q3

REPORT INFORMATION
  Report Type: 
  Country: None (occurrence: None)
  Receive Date: 20080827
  Receipt Date: 20071113
  Transmission Date: 20090109
  Serious: No
  Sender: FDA-Public Use
  Company Number: US-ABBOTT-07P-163-0425263-00

PATIENT
  Sex: Male

DRUGS (2)
  1. NIASPAN [Suspect]
     Indication: BLOOD CHOLESTEROL INCREASED
     Route: 048
     Dates: start: 20071001, end: 20071101
  2. NIASPAN [Suspect]
     Dosage: TWO (COATED)
     Route: 048
     Dates: end: 20071001

REACTIONS (2)
  - BLOOD URINE PRESENT [None]
  - FLUSHING [None]
